FAERS Safety Report 5140396-9 (Version None)
Quarter: 2006Q4

REPORT INFORMATION
  Report Type: 
  Country: None (occurrence: None)
  Receive Date: 20061024
  Receipt Date: 20061005
  Transmission Date: 20070319
  Serious: Yes (Disabling)
  Sender: FDA-Public Use
  Company Number: GB200610001077

PATIENT
  Age: 64 Year
  Sex: Female

DRUGS (4)
  1. FORTEO [Suspect]
     Indication: OSTEOPOROSIS
     Dosage: 10 UG, WEEKLY (1/W), SUBCUTANEOUS
     Route: 058
     Dates: start: 20060403, end: 20060905
  2. FORTEO [Concomitant]
  3. CALCIUM PHOSPHATE (CALCIUM PHOSPHATE) [Concomitant]
  4. COLECALCIFEROL (COLECALCIFEROL) [Concomitant]

REACTIONS (1)
  - VENTRICULAR DYSFUNCTION [None]
